FAERS Safety Report 6779029-4 (Version None)
Quarter: 2010Q2

REPORT INFORMATION
  Report Type: 
  Country: None (occurrence: None)
  Receive Date: 20100618
  Receipt Date: 20100603
  Transmission Date: 20101027
  Serious: Yes (Disabling)
  Sender: FDA-Public Use
  Company Number: GB-MYLANLABS-2010S1009851

PATIENT
  Age: 64 Year
  Sex: Male
  Weight: 107 kg

DRUGS (4)
  1. KETOPROFEN [Suspect]
     Indication: DRUG USE FOR UNKNOWN INDICATION
  2. CELEBREX [Suspect]
     Indication: ARTHRITIS
  3. TRAMADOL [Suspect]
     Indication: DRUG USE FOR UNKNOWN INDICATION
  4. VORICONAZOLE [Suspect]
     Indication: BRONCHOPULMONARY ASPERGILLOSIS
     Route: 048
     Dates: start: 20100201, end: 20100507

REACTIONS (5)
  - CONSTIPATION [None]
  - DIARRHOEA [None]
  - DRUG INTERACTION [None]
  - FEELING ABNORMAL [None]
  - NEUROPATHY PERIPHERAL [None]
